FAERS Safety Report 23110316 (Version 4)
Quarter: 2025Q1

REPORT INFORMATION
  Report Type: Spontaneous
  Country: US (occurrence: US)
  Receive Date: 20231026
  Receipt Date: 20250307
  Transmission Date: 20250408
  Serious: No
  Sender: SANOFI AVENTIS
  Company Number: US-SA-SAC20231020000634

PATIENT
  Sex: Male
  Weight: 90.703 kg

DRUGS (7)
  1. DUPIXENT [Suspect]
     Active Substance: DUPILUMAB
     Indication: Illness
     Dosage: 300 MG, QOW
     Route: 058
  2. DUPIXENT [Suspect]
     Active Substance: DUPILUMAB
     Dosage: 300 MG, QOW
     Route: 058
  3. WAL DRYL [Concomitant]
  4. ALEVE [Concomitant]
     Active Substance: NAPROXEN SODIUM
  5. TYLENOL [Concomitant]
     Active Substance: ACETAMINOPHEN
  6. HYDROXYZINE [Concomitant]
     Active Substance: HYDROXYZINE HYDROCHLORIDE
  7. CLOBETASOL PROPIONATE [Concomitant]
     Active Substance: CLOBETASOL PROPIONATE

REACTIONS (8)
  - Dermatitis [Unknown]
  - Drug ineffective [Unknown]
  - Eczema [Unknown]
  - Urticaria [Unknown]
  - Rash erythematous [Unknown]
  - Therapeutic response decreased [Unknown]
  - Rash [Unknown]
  - Product dose omission issue [Unknown]
